FAERS Safety Report 24181593 (Version 1)
Quarter: 2024Q3

REPORT INFORMATION
  Report Type: Report from Study
  Country: US (occurrence: None)
  Receive Date: 20240807
  Receipt Date: 20240807
  Transmission Date: 20241017
  Serious: Yes (Hospitalization, Other)
  Sender: ASTRAZENECA
  Company Number: 2021A623963

PATIENT
  Sex: Female
  Weight: 47.6 kg

DRUGS (1)
  1. FASENRA [Suspect]
     Active Substance: BENRALIZUMAB
     Indication: Asthma
     Route: 058

REACTIONS (10)
  - Cardiac disorder [Unknown]
  - Hypertension [Unknown]
  - Cough [Unknown]
  - Dyspnoea exertional [Unknown]
  - Fatigue [Unknown]
  - Memory impairment [Unknown]
  - Anxiety [Unknown]
  - Rhonchi [Unknown]
  - Chronic obstructive pulmonary disease [Unknown]
  - Asthma [Unknown]
